FAERS Safety Report 6621957-4 (Version None)
Quarter: 2010Q1

REPORT INFORMATION
  Report Type: 
  Country: None (occurrence: None)
  Receive Date: 20100223
  Receipt Date: 20091231
  Transmission Date: 20100710
  Serious: No
  Sender: FDA-Public Use
  Company Number: 003816

PATIENT
  Sex: Female
  Weight: 77.1 kg

DRUGS (8)
  1. CIMZIA [Suspect]
     Indication: CROHN'S DISEASE
     Dosage: 400 MG SUBCUTANEOUS, 400 MG SUBCUTANEOUS
     Route: 058
     Dates: start: 20090901, end: 20090901
  2. CIMZIA [Suspect]
     Indication: CROHN'S DISEASE
     Dosage: 400 MG SUBCUTANEOUS, 400 MG SUBCUTANEOUS
     Route: 058
     Dates: start: 20091215
  3. PENTASA [Concomitant]
  4. SPIRIVA [Concomitant]
  5. ADVAIR DISKUS 100/50 [Concomitant]
  6. UNIPHYL [Concomitant]
  7. XOPENEX [Concomitant]
  8. IPRATROPIUM BROMIDE [Concomitant]

REACTIONS (8)
  - ASTHENIA [None]
  - CHILLS [None]
  - DYSPNOEA [None]
  - FATIGUE [None]
  - OEDEMA PERIPHERAL [None]
  - PNEUMONIA [None]
  - PRURITUS [None]
  - URTICARIA [None]
